FAERS Safety Report 7680342-7 (Version None)
Quarter: 2011Q3

REPORT INFORMATION
  Report Type: 
  Country: None (occurrence: None)
  Receive Date: 20110811
  Receipt Date: 20110811
  Transmission Date: 20111222
  Serious: Yes (Other)
  Sender: FDA-Public Use
  Company Number: None

PATIENT
  Sex: Female
  Weight: 61.4 kg

DRUGS (1)
  1. NORTRIPTYLINE HCL [Suspect]
     Indication: NEURALGIA
     Dosage: 10MG FOR 1 WEEK, THEN 20 MG 1X/DAY ORAL
     Route: 048
     Dates: start: 20110610, end: 20110618

REACTIONS (3)
  - ERYTHROMELALGIA [None]
  - SUICIDAL IDEATION [None]
  - DEPRESSION [None]
